FAERS Safety Report 6173662-9 (Version None)
Quarter: 2009Q2

REPORT INFORMATION
  Report Type: 
  Country: None (occurrence: None)
  Receive Date: 20090429
  Receipt Date: 20090429
  Transmission Date: 20091009
  Serious: No
  Sender: FDA-Public Use
  Company Number: None

PATIENT
  Sex: Female
  Weight: 54.8852 kg

DRUGS (1)
  1. ADALAT CC [Suspect]
     Indication: HYPERTENSION
     Dosage: 60MG 1/DAY PILL ORAL  (JAN - MAR 2009 - DOSE HAD BEEN INCREASED FROM EO TO 60)
     Route: 048

REACTIONS (2)
  - FEELING JITTERY [None]
  - HEART RATE INCREASED [None]
